FAERS Safety Report 4513446-8 (Version None)
Quarter: 2004Q4

REPORT INFORMATION
  Report Type: 
  Country: None (occurrence: None)
  Receive Date: 20041130
  Receipt Date: 20041015
  Transmission Date: 20050328
  Serious: Yes (Other)
  Sender: FDA-Public Use
  Company Number: US-BRISTOL-MYERS SQUIBB COMPANY-12734158

PATIENT
  Age: 50 Year
  Sex: Male

DRUGS (3)
  1. ERBITUX [Suspect]
     Dosage: DRUG HELD.
     Route: 042
     Dates: start: 20041004, end: 20041004
  2. BENADRYL [Concomitant]
     Indication: PREMEDICATION
     Route: 042
     Dates: start: 20041004, end: 20041004
  3. TYLENOL (CAPLET) [Concomitant]
     Indication: PREMEDICATION
     Dates: start: 20041004, end: 20041004

REACTIONS (1)
  - RASH ERYTHEMATOUS [None]
